FAERS Safety Report 5611955-1 (Version None)
Quarter: 2008Q1

REPORT INFORMATION
  Report Type: 
  Country: None (occurrence: None)
  Receive Date: 20080130
  Receipt Date: 20080130
  Transmission Date: 20080703
  Serious: Yes (Hospitalization)
  Sender: FDA-Public Use
  Company Number: None

PATIENT
  Age: 56 Year
  Sex: Male
  Weight: 81 kg

DRUGS (15)
  1. CCI-779 (TEMSIROLIMUS) [Suspect]
     Indication: MULTIPLE MYELOMA
     Dosage: 25MG/M2 WEEKLY
     Dates: start: 20080124
  2. VELCADE [Suspect]
     Indication: MULTIPLE MYELOMA
     Dosage: 1.3MG/M2 WEEKLY FOR 4
     Dates: start: 20080124
  3. ALBUTEROL [Concomitant]
  4. FLUTICASONE PROPIONATE [Concomitant]
  5. NICOTINE [Concomitant]
  6. OMEPRAZOLE [Concomitant]
  7. SENNOSIDES [Concomitant]
  8. TIOTROPIUM [Concomitant]
  9. DARBEPOETIME ALFA [Concomitant]
  10. FLUTICASONE PROPIONATE [Concomitant]
  11. FOLIC ACID [Concomitant]
  12. OXYCODONE HCL [Concomitant]
  13. ACETYLSALICYLIC ACID SRT [Concomitant]
  14. AMOXICILLIN ALTERNATE [Concomitant]
  15. CLARITHROMYCIN [Concomitant]

REACTIONS (3)
  - BACK PAIN [None]
  - INTERVERTEBRAL DISC DEGENERATION [None]
  - SPINAL CORD COMPRESSION [None]
